FAERS Safety Report 4492905-0 (Version None)
Quarter: 2004Q4

REPORT INFORMATION
  Report Type: 
  Country: None (occurrence: None)
  Receive Date: 20041104
  Receipt Date: 20041028
  Transmission Date: 20050328
  Serious: Yes (Hospitalization)
  Sender: FDA-Public Use
  Company Number: US-MERCK-0411USA00338

PATIENT
  Age: 81 Year
  Sex: Female

DRUGS (11)
  1. NORVASC [Concomitant]
     Route: 065
  2. ZETIA [Suspect]
     Indication: HYPERLIPIDAEMIA
     Route: 048
     Dates: start: 20040801, end: 20040101
  3. SPIRIVA [Concomitant]
     Route: 065
  4. METOPROLOL [Concomitant]
     Route: 065
  5. FLECAINIDE ACETATE [Concomitant]
     Route: 065
  6. ZOCOR [Concomitant]
     Route: 048
  7. ASPIRIN [Concomitant]
     Route: 065
  8. ALTACE [Concomitant]
     Route: 065
  9. SODIUM FOLATE [Concomitant]
     Route: 065
  10. PLAVIX [Concomitant]
     Route: 065
  11. LEVOXYL [Concomitant]
     Route: 065

REACTIONS (3)
  - CHEST PAIN [None]
  - CONDITION AGGRAVATED [None]
  - HYPERTENSION [None]
